FAERS Safety Report 7403656-4 (Version None)
Quarter: 2011Q1

REPORT INFORMATION
  Report Type: 
  Country: None (occurrence: None)
  Receive Date: 20110331
  Receipt Date: 20110315
  Transmission Date: 20110831
  Serious: No
  Sender: FDA-Public Use
  Company Number: 201102012

PATIENT
  Age: 14 Year
  Sex: Female
  Weight: 55.5656 kg

DRUGS (1)
  1. TESTIM [Suspect]

REACTIONS (2)
  - HYPERTRICHOSIS [None]
  - ACCIDENTAL EXPOSURE [None]
